FAERS Safety Report 5913266-3 (Version None)
Quarter: 2008Q4

REPORT INFORMATION
  Report Type: 
  Country: None (occurrence: None)
  Receive Date: 20081008
  Receipt Date: 20081008
  Transmission Date: 20090506
  Serious: Yes (Life-Threatening, Other)
  Sender: FDA-Public Use
  Company Number: None

PATIENT
  Sex: Female
  Weight: 65.7716 kg

DRUGS (2)
  1. LAMICTAL [Suspect]
     Indication: BIPOLAR DISORDER
     Dosage: 25 MG FIRST 2 WEEKS ONCE A DAY; 50 MG 3RD AND 4TH WEEK ONCE A DAY
     Dates: start: 20080915, end: 20081007
  2. LAMICTAL [Suspect]
     Indication: DEPRESSION
     Dosage: 25 MG FIRST 2 WEEKS ONCE A DAY; 50 MG 3RD AND 4TH WEEK ONCE A DAY
     Dates: start: 20080915, end: 20081007

REACTIONS (7)
  - ABNORMAL BEHAVIOUR [None]
  - ANGER [None]
  - CRYING [None]
  - FEAR [None]
  - FEELING ABNORMAL [None]
  - SUICIDAL IDEATION [None]
  - VERTIGO [None]
